FAERS Safety Report 26021221 (Version 1)
Quarter: 2025Q4

REPORT INFORMATION
  Report Type: Spontaneous
  Country: US (occurrence: US)
  Receive Date: 20251110
  Receipt Date: 20251110
  Transmission Date: 20260118
  Serious: Yes (Other)
  Sender: ALEXION PHARMACEUTICALS
  Company Number: US-ASTRAZENECA-202511GLO002103US

PATIENT
  Sex: Female
  Weight: 67 kg

DRUGS (11)
  1. NEXIUM [Suspect]
     Active Substance: ESOMEPRAZOLE MAGNESIUM
     Dosage: UNK
     Route: 065
  2. PREMARIN [Concomitant]
     Active Substance: ESTROGENS, CONJUGATED
  3. TRAMADOL [Concomitant]
     Active Substance: TRAMADOL
  4. CYCLOBENZAPRINE [Concomitant]
     Active Substance: CYCLOBENZAPRINE
  5. KETOROLAC [Concomitant]
     Active Substance: KETOROLAC TROMETHAMINE
  6. DIOVAN [Concomitant]
     Active Substance: VALSARTAN
  7. PREVACID [Concomitant]
     Active Substance: LANSOPRAZOLE
  8. ASPIRIN [Concomitant]
     Active Substance: ASPIRIN
  9. NAPROXEN [Concomitant]
     Active Substance: NAPROXEN
  10. DEXILANT [Concomitant]
     Active Substance: DEXLANSOPRAZOLE
  11. PAXIL [Concomitant]
     Active Substance: PAROXETINE HYDROCHLORIDE

REACTIONS (1)
  - Gastric cancer [Unknown]
